FAERS Safety Report 6263109-6 (Version None)
Quarter: 2009Q3

REPORT INFORMATION
  Report Type: 
  Country: None (occurrence: None)
  Receive Date: 20090710
  Receipt Date: 20090707
  Transmission Date: 20100115
  Serious: Yes (Hospitalization)
  Sender: FDA-Public Use
  Company Number: US-BAYER-200924183GPV

PATIENT
  Age: 58 Year
  Sex: Male

DRUGS (6)
  1. SORAFENIB [Suspect]
     Indication: RENAL CELL CARCINOMA
     Dosage: TOTAL DAILY DOSE: 400 MG
     Route: 048
     Dates: start: 20081105
  2. SORAFENIB [Suspect]
     Route: 048
     Dates: start: 20090624
  3. AMG 386 OR PLACEBO [Suspect]
     Indication: RENAL CELL CARCINOMA
     Route: 042
     Dates: start: 20081105
  4. AMG 386 OR PLACEBO [Suspect]
     Route: 042
     Dates: start: 20090624
  5. GLIBENCLAMIDE [Concomitant]
  6. VERAPAMIL [Concomitant]
     Route: 048

REACTIONS (2)
  - CELLULITIS [None]
  - OSTEOMYELITIS [None]
